FAERS Safety Report 4679750-8 (Version None)
Quarter: 2005Q2

REPORT INFORMATION
  Report Type: 
  Country: None (occurrence: None)
  Receive Date: 20050531
  Receipt Date: 20050518
  Transmission Date: 20051028
  Serious: Yes (Other)
  Sender: FDA-Public Use
  Company Number: 2004111446

PATIENT
  Age: 41 Year
  Sex: Male

DRUGS (10)
  1. DOXORUBICIN HCL [Suspect]
     Indication: NON-HODGKIN'S LYMPHOMA
     Dosage: (CYCLICAL)
     Dates: start: 19951227, end: 19960313
  2. PREDNISONE [Suspect]
     Indication: NON-HODGKIN'S LYMPHOMA
     Dosage: (CYCLICAL)
     Dates: start: 19951227, end: 19960313
  3. IRINOTECAN HCL [Suspect]
     Indication: NON-HODGKIN'S LYMPHOMA
     Dosage: (CYCLICAL)
     Dates: start: 19961111, end: 19961216
  4. ETOPOSIDE [Suspect]
     Indication: NON-HODGKIN'S LYMPHOMA
     Dosage: (CYCLICAL)
     Dates: start: 19951227, end: 19960313
  5. VINCRISTINE [Suspect]
     Indication: NON-HODGKIN'S LYMPHOMA
     Dosage: (CYCLICAL)
     Dates: start: 19951227, end: 19960313
  6. METHOTREXATE [Suspect]
     Indication: NON-HODGKIN'S LYMPHOMA
     Dosage: (CYCLICAL)
     Dates: start: 19951227, end: 19960313
  7. CYCLOPHOSPHAMIDE [Suspect]
     Indication: NON-HODGKIN'S LYMPHOMA
     Dosage: (CYCLICAL)
     Dates: start: 19951227, end: 19960313
  8. CARBOPLATIN [Suspect]
     Indication: NON-HODGKIN'S LYMPHOMA
     Dosage: (CYCLICAL)
     Dates: start: 19951227, end: 19960313
  9. MITOXANTRONE [Suspect]
     Indication: NON-HODGKIN'S LYMPHOMA
     Dosage: (CYCLICAL)
     Dates: start: 19951227, end: 19960313
  10. CLADRIBINE [Suspect]
     Indication: NON-HODGKIN'S LYMPHOMA
     Dosage: (CYCLICAL)
     Dates: start: 19970109, end: 19970511

REACTIONS (1)
  - MYELODYSPLASTIC SYNDROME [None]
